FAERS Safety Report 13706008 (Version 1)
Quarter: 2017Q2

REPORT INFORMATION
  Report Type: Spontaneous
  Country: US (occurrence: US)
  Receive Date: 20170630
  Receipt Date: 20170630
  Transmission Date: 20170830
  Serious: No
  Sender: FDA-Public Use
  Company Number: GXBR2017US001753

PATIENT
  Sex: Female
  Weight: 79.37 kg

DRUGS (1)
  1. BIMATOPROST. [Suspect]
     Active Substance: BIMATOPROST
     Indication: GROWTH OF EYELASHES
     Dosage: UNK DF, UNK
     Route: 065

REACTIONS (1)
  - Madarosis [Not Recovered/Not Resolved]
